FAERS Safety Report 13387060 (Version 2)
Quarter: 2017Q2

REPORT INFORMATION
  Report Type: Report from Study
  Country: DE (occurrence: DE)
  Receive Date: 20170330
  Receipt Date: 20170403
  Transmission Date: 20170830
  Serious: Yes (Death, Life-Threatening, Hospitalization, Other)
  Sender: FDA-Public Use
  Company Number: PHHY2016DE158634

PATIENT
  Sex: Female
  Weight: 54 kg

DRUGS (3)
  1. AFINITOR [Suspect]
     Active Substance: EVEROLIMUS
     Indication: BREAST CANCER METASTATIC
     Dosage: 10 MG, QD
     Route: 048
     Dates: start: 20161016, end: 20161110
  2. AFINITOR [Suspect]
     Active Substance: EVEROLIMUS
     Dosage: 5 MG, QD
     Route: 048
     Dates: start: 20161111, end: 20161116
  3. EXEMESTANE. [Suspect]
     Active Substance: EXEMESTANE
     Indication: BREAST CANCER METASTATIC
     Dosage: 25 MG, QD
     Route: 048
     Dates: start: 20161014, end: 20161116

REACTIONS (11)
  - Malignant neoplasm of pleura [Not Recovered/Not Resolved]
  - Breast cancer [Fatal]
  - Malignant neoplasm progression [Fatal]
  - Hypoaesthesia [Unknown]
  - Dyspnoea exertional [Unknown]
  - Fatigue [Unknown]
  - Multiple organ dysfunction syndrome [Fatal]
  - Pleural effusion [Not Recovered/Not Resolved]
  - Lymphangiosis carcinomatosa [Not Recovered/Not Resolved]
  - Metastases to lung [Not Recovered/Not Resolved]
  - Dizziness [Unknown]

NARRATIVE: CASE EVENT DATE: 201611
